FAERS Safety Report 18045556 (Version 3)
Quarter: 2020Q3

REPORT INFORMATION
  Report Type: Report from Study
  Country: FR (occurrence: FR)
  Receive Date: 20200720
  Receipt Date: 20200908
  Transmission Date: 20201103
  Serious: Yes (Life-Threatening, Hospitalization)
  Sender: FDA-Public Use
  Company Number: FR-ALLERGAN-2026885US

PATIENT
  Sex: Male
  Weight: 63 kg

DRUGS (8)
  1. CEFTAZIDIME;AVIBACTAM ? BP [Suspect]
     Active Substance: AVIBACTAM SODIUM\CEFTAZIDIME
     Indication: PNEUMONIA KLEBSIELLA
     Dosage: 750 MG, QOD (EVERY 48 HOURS)
     Route: 065
     Dates: start: 202001, end: 20200131
  2. TACROLIMUS. [Concomitant]
     Active Substance: TACROLIMUS
     Dosage: 15 MG, BID
     Dates: start: 20191218, end: 20200130
  3. CITALOPRAM [Concomitant]
     Active Substance: CITALOPRAM HYDROBROMIDE
     Dosage: 20 MG, QD
     Dates: start: 20191018, end: 20200130
  4. BACTRIM [Concomitant]
     Active Substance: SULFAMETHOXAZOLE\TRIMETHOPRIM
     Indication: INFECTION
     Dosage: 400 MG, THREE TIMES PER WEEK
     Dates: start: 20191101, end: 20200130
  5. MIRTAZAPIN [Concomitant]
     Active Substance: MIRTAZAPINE
     Dosage: 15 MG, QD
     Dates: start: 20191106, end: 20200130
  6. AMIKACIN. [Concomitant]
     Active Substance: AMIKACIN
     Indication: INFECTION
     Dosage: UNK
     Dates: start: 20200122, end: 20200210
  7. VALGANCICLOVIR. [Concomitant]
     Active Substance: VALGANCICLOVIR
     Dosage: 100 MG, THREE TIMES PER WEEK
     Dates: start: 20191101, end: 20200130
  8. CEFTAZIDIME;AVIBACTAM ? BP [Suspect]
     Active Substance: AVIBACTAM SODIUM\CEFTAZIDIME
     Dosage: 2G/0.5G, QD
     Route: 065
     Dates: start: 20200124

REACTIONS (2)
  - Hepatocellular injury [Recovered/Resolved]
  - Cholestasis [Recovered/Resolved]

NARRATIVE: CASE EVENT DATE: 20200127
